FAERS Safety Report 5415880-0 (Version None)
Quarter: 2007Q3

REPORT INFORMATION
  Report Type: 
  Country: None (occurrence: None)
  Receive Date: 20070815
  Receipt Date: 20070731
  Transmission Date: 20080115
  Serious: No
  Sender: FDA-Public Use
  Company Number: US-BOEHRINGER INGELHEIM PHARMACEUTICALS, INC.-2007-BP-18220BP

PATIENT
  Sex: Male

DRUGS (4)
  1. FLOMAX [Suspect]
     Indication: BENIGN PROSTATIC HYPERPLASIA
     Route: 048
     Dates: start: 20060101
  2. OXYCONTIN [Concomitant]
     Indication: ARTHRITIS
  3. PERCOCET [Concomitant]
  4. SOMA [Concomitant]
     Indication: SLEEP DISORDER

REACTIONS (2)
  - NOCTURIA [None]
  - THERAPEUTIC REACTION TIME DECREASED [None]
